FAERS Safety Report 8727411 (Version 2)
Quarter: 2012Q4

REPORT INFORMATION
  Report Type: 
  Country: CO (occurrence: CO)
  Receive Date: 20120816
  Receipt Date: 20121004
  Transmission Date: 20130627
  Serious: Yes (Other)
  Sender: FDA-Public Use
  Company Number: CO-ROCHE-1102272

PATIENT
  Age: 33 Year
  Sex: Female

DRUGS (2)
  1. XOLAIR [Suspect]
     Indication: LATEX ALLERGY
     Route: 058
     Dates: start: 20120806
  2. XOLAIR [Suspect]
     Indication: ALLERGY TO CHEMICALS

REACTIONS (4)
  - Rash macular [Recovering/Resolving]
  - Myalgia [Recovering/Resolving]
  - Odynophagia [Recovering/Resolving]
  - Sunburn [Recovering/Resolving]
